FAERS Safety Report 17921758 (Version 1)
Quarter: 2020Q2

REPORT INFORMATION
  Report Type: Spontaneous
  Country: US (occurrence: US)
  Receive Date: 20200622
  Receipt Date: 20200622
  Transmission Date: 20200714
  Serious: No
  Sender: FDA-Public Use
  Company Number: US-ALLERGAN-1941844US

PATIENT
  Sex: Female
  Weight: 101.7 kg

DRUGS (3)
  1. SKELAXIN [Concomitant]
     Active Substance: METAXALONE
     Dosage: 800 MG, QHS
     Route: 048
  2. SULFACETAMIDE UNK [Suspect]
     Active Substance: SULFACETAMIDE
     Indication: PRODUCT USED FOR UNKNOWN INDICATION
  3. NEURONTIN [Concomitant]
     Active Substance: GABAPENTIN
     Indication: INTERVERTEBRAL DISC DEGENERATION
     Dosage: 400 MG, BID
     Route: 048

REACTIONS (2)
  - Rash [Unknown]
  - Urticaria [Unknown]
